FAERS Safety Report 12982830 (Version 3)
Quarter: 2016Q4

REPORT INFORMATION
  Report Type: Spontaneous
  Country: FR (occurrence: FR)
  Receive Date: 20161129
  Receipt Date: 20161227
  Transmission Date: 20170207
  Serious: Yes (Hospitalization)
  Sender: FDA-Public Use
  Company Number: FR-PFIZER INC-2016548930

PATIENT
  Age: 73 Year
  Sex: Female

DRUGS (7)
  1. INIPOMP [Suspect]
     Active Substance: PANTOPRAZOLE SODIUM
     Dosage: UNK
     Route: 048
     Dates: end: 20130610
  2. SERESTA [Suspect]
     Active Substance: OXAZEPAM
     Dosage: UNK
     Route: 048
     Dates: end: 20130610
  3. AUGMENTIN [Suspect]
     Active Substance: AMOXICILLIN\CLAVULANATE POTASSIUM
     Indication: BRONCHITIS
     Dosage: UNK
     Route: 048
     Dates: start: 201305, end: 201305
  4. KARDEGIC [Suspect]
     Active Substance: ASPIRIN LYSINE
     Dosage: UNK
     Route: 048
     Dates: end: 20130610
  5. BISOCE [Suspect]
     Active Substance: BISOPROLOL
     Dosage: UNK
     Route: 048
     Dates: end: 20130610
  6. LOVENOX [Suspect]
     Active Substance: ENOXAPARIN SODIUM
     Dosage: UNK
     Route: 058
     Dates: end: 20130610
  7. AMLOR [Suspect]
     Active Substance: AMLODIPINE BESYLATE
     Dosage: UNK
     Route: 048
     Dates: end: 20130610

REACTIONS (5)
  - Hepatitis [Recovering/Resolving]
  - Hepatitis cholestatic [Recovering/Resolving]
  - Dermatitis exfoliative [Recovered/Resolved]
  - Eosinophilia [Recovered/Resolved]
  - Drug-induced liver injury [Recovering/Resolving]

NARRATIVE: CASE EVENT DATE: 20130610
